FAERS Safety Report 7807104-1 (Version None)
Quarter: 2011Q4

REPORT INFORMATION
  Report Type: 
  Country: None (occurrence: None)
  Receive Date: 20111011
  Receipt Date: 20111007
  Transmission Date: 20120403
  Serious: No
  Sender: FDA-Public Use
  Company Number: US-PFIZER INC-2011240188

PATIENT
  Sex: Female

DRUGS (1)
  1. ADVIL PM [Suspect]
     Dosage: UNK
     Route: 065

REACTIONS (4)
  - HYPOAESTHESIA [None]
  - TREMOR [None]
  - HEART RATE IRREGULAR [None]
  - PALPITATIONS [None]
